FAERS Safety Report 24029818 (Version 2)
Quarter: 2024Q3

REPORT INFORMATION
  Report Type: Report from Study
  Country: MY (occurrence: MY)
  Receive Date: 20240628
  Receipt Date: 20240704
  Transmission Date: 20241016
  Serious: No
  Sender: TAKEDA
  Company Number: MY-TAKEDA-2024TUS063700

PATIENT
  Sex: Male

DRUGS (1)
  1. VEDOLIZUMAB [Suspect]
     Active Substance: VEDOLIZUMAB
     Indication: Crohn^s disease
     Dosage: 300 MILLIGRAM
     Route: 042
     Dates: start: 20210610

REACTIONS (1)
  - No adverse event [Unknown]
